FAERS Safety Report 8459725 (Version 2)
Quarter: 2016Q3

REPORT INFORMATION
  Report Type: Spontaneous
  Country: US (occurrence: US)
  Receive Date: 20120314
  Receipt Date: 20160808
  Transmission Date: 20161109
  Serious: No
  Sender: FDA-Public Use
  Company Number: US-ASTRAZENECA-2011SE19523

PATIENT
  Age: 51 Year
  Sex: Male
  Weight: 88.5 kg

DRUGS (19)
  1. PRILOSEC [Suspect]
     Active Substance: OMEPRAZOLE MAGNESIUM
     Indication: GASTROOESOPHAGEAL REFLUX DISEASE
     Route: 048
     Dates: start: 1989
  2. TICOSIN [Concomitant]
     Indication: ARRHYTHMIA
  3. PRILOSEC [Suspect]
     Active Substance: OMEPRAZOLE MAGNESIUM
     Indication: GASTROOESOPHAGEAL REFLUX DISEASE
     Route: 048
  4. TOPROL XL [Suspect]
     Active Substance: METOPROLOL SUCCINATE
     Indication: CARDIAC FAILURE
     Dosage: 100.0MG UNKNOWN
     Route: 048
  5. TOPROL XL [Suspect]
     Active Substance: METOPROLOL SUCCINATE
     Indication: HYPERTENSION
     Dosage: 100.0MG UNKNOWN
     Route: 048
  6. TOPROL XL [Suspect]
     Active Substance: METOPROLOL SUCCINATE
     Indication: ARRHYTHMIA
     Dosage: 100.0MG UNKNOWN
     Route: 048
  7. DILTIAZEM. [Concomitant]
     Active Substance: DILTIAZEM
     Indication: CARDIAC DISORDER
  8. TOPROL XL [Suspect]
     Active Substance: METOPROLOL SUCCINATE
     Indication: ARRHYTHMIA
     Dosage: 200.0MG UNKNOWN
     Route: 048
  9. DILTIAZEM. [Concomitant]
     Active Substance: DILTIAZEM
     Indication: BLOOD PRESSURE ABNORMAL
  10. FLOMAX [Concomitant]
     Active Substance: TAMSULOSIN HYDROCHLORIDE
     Indication: PROSTATOMEGALY
  11. TOPROL XL [Suspect]
     Active Substance: METOPROLOL SUCCINATE
     Indication: HYPERTENSION
     Dosage: 200.0MG UNKNOWN
     Route: 048
  12. TOPROL XL [Suspect]
     Active Substance: METOPROLOL SUCCINATE
     Indication: HYPERTENSION
     Dosage: 100.0MG UNKNOWN
     Route: 048
  13. TOPROL XL [Suspect]
     Active Substance: METOPROLOL SUCCINATE
     Indication: ARRHYTHMIA
     Dosage: 100.0MG UNKNOWN
     Route: 048
  14. ALOPURINOL [Concomitant]
     Active Substance: ALLOPURINOL
  15. ASA [Concomitant]
     Active Substance: ASPIRIN
  16. TOPROL XL [Suspect]
     Active Substance: METOPROLOL SUCCINATE
     Indication: CARDIAC FAILURE
     Dosage: 100.0MG UNKNOWN
     Route: 048
  17. TOPROL XL [Suspect]
     Active Substance: METOPROLOL SUCCINATE
     Indication: CARDIAC FAILURE
     Dosage: 200.0MG UNKNOWN
     Route: 048
  18. METFORMIN HCL [Concomitant]
     Active Substance: METFORMIN HYDROCHLORIDE
     Indication: DIABETES MELLITUS
  19. MULTIVITAMIN B12 FOLIC ACID CALICUM FISH OIL POTASSIUM [Concomitant]

REACTIONS (7)
  - Ventricular extrasystoles [Unknown]
  - Intentional product misuse [Unknown]
  - Palpitations [Unknown]
  - Cardiac disorder [Unknown]
  - Dizziness [Unknown]
  - Type 2 diabetes mellitus [Unknown]
  - Drug dose omission [Unknown]

NARRATIVE: CASE EVENT DATE: 2001
